FAERS Safety Report 5143035-6 (Version None)
Quarter: 2006Q4

REPORT INFORMATION
  Report Type: 
  Country: None (occurrence: None)
  Receive Date: 20061103
  Receipt Date: 20060728
  Transmission Date: 20070319
  Serious: Yes (Other)
  Sender: FDA-Public Use
  Company Number: 2006GB01320

PATIENT
  Age: 58 Year
  Sex: Female

DRUGS (1)
  1. ARIMIDEX [Suspect]
     Indication: BREAST CANCER STAGE II
     Route: 048
     Dates: start: 20040501

REACTIONS (1)
  - CARPAL TUNNEL SYNDROME [None]
